FAERS Safety Report 8902211 (Version 1)
Quarter: 2012Q4

REPORT INFORMATION
  Report Type: 
  Country: IT (occurrence: IT)
  Receive Date: 20121112
  Receipt Date: 20121112
  Transmission Date: 20130627
  Serious: Yes (Hospitalization)
  Sender: FDA-Public Use
  Company Number: IT-ROCHE-1154466

PATIENT
  Age: 85 Year
  Sex: Female

DRUGS (3)
  1. KETOROLAC TROMETHAMINE [Suspect]
     Indication: ARTHRALGIA
     Route: 048
     Dates: start: 20100801, end: 20100809
  2. ARCOXIA [Suspect]
     Indication: ARTHRALGIA
     Route: 048
     Dates: start: 20100801, end: 20100809
  3. EUTIROX [Concomitant]

REACTIONS (4)
  - Dysphonia [Recovered/Resolved]
  - Urticaria [Recovered/Resolved]
  - Pruritus [Recovered/Resolved]
  - Generalised erythema [Recovered/Resolved]
